FAERS Safety Report 25781272 (Version 2)
Quarter: 2025Q4

REPORT INFORMATION
  Report Type: Report from Study
  Country: US (occurrence: US)
  Receive Date: 20250909
  Receipt Date: 20251021
  Transmission Date: 20260117
  Serious: Yes (Other)
  Sender: NEUROCRINE BIOSCIENCES
  Company Number: US-NBI-NBI-US-2348-2025

PATIENT
  Age: 31 Year
  Sex: Female

DRUGS (6)
  1. CRINECERFONT [Suspect]
     Active Substance: CRINECERFONT
     Indication: Adrenogenital syndrome
     Dosage: 100 MILLIGRAM, BID (WITH FOOD)
     Route: 048
     Dates: start: 20250709, end: 202508
  2. HYDROCORTISONE [Concomitant]
     Active Substance: HYDROCORTISONE
     Dosage: 5 MG AM, 20 MG PM
  3. HYDROCORTISONE [Concomitant]
     Active Substance: HYDROCORTISONE
     Dosage: 35 MILLIGRAM, QD
  4. FLUDROCORTISONE [Concomitant]
     Active Substance: FLUDROCORTISONE
     Dosage: 0.1 MILLIGRAM, QD
  5. TOPAMAX [Concomitant]
     Active Substance: TOPIRAMATE
  6. AMPHETAMINE [Concomitant]
     Active Substance: AMPHETAMINE

REACTIONS (6)
  - Suicidal ideation [Unknown]
  - Heart rate increased [Unknown]
  - Dyspnoea [Unknown]
  - Malaise [Unknown]
  - Anxiety [Recovered/Resolved]
  - Depression [Unknown]
